FAERS Safety Report 4966576-0 (Version None)
Quarter: 2006Q2

REPORT INFORMATION
  Report Type: 
  Country: None (occurrence: None)
  Receive Date: 20060407
  Receipt Date: 20060330
  Transmission Date: 20061013
  Serious: Yes (Other)
  Sender: FDA-Public Use
  Company Number: 2006UW05764

PATIENT
  Age: 55 Year
  Sex: Male
  Weight: 103.6 kg

DRUGS (18)
  1. CRESTOR [Suspect]
     Indication: HYPERCHOLESTEROLAEMIA
     Route: 048
     Dates: start: 20060223, end: 20060303
  2. CRESTOR [Suspect]
     Route: 048
     Dates: start: 20060313, end: 20060321
  3. OSCLTAMVIR [Suspect]
     Indication: INFLUENZA IMMUNISATION
     Route: 048
     Dates: start: 20060223, end: 20060228
  4. PERINDOPRIL [Suspect]
     Indication: HYPERTENSION
     Route: 048
     Dates: start: 20060222, end: 20060306
  5. CYANOCOBALAMIN [Concomitant]
     Route: 048
     Dates: start: 20060224
  6. DOCUSATE SODIUM [Concomitant]
     Route: 048
     Dates: start: 20060221
  7. FOLIC ACID [Concomitant]
     Route: 048
     Dates: start: 20060224
  8. METOPROLOL SUCCINATE [Concomitant]
     Route: 048
     Dates: start: 20060221
  9. PHENOBARBITAL TAB [Concomitant]
     Route: 048
     Dates: start: 20060221, end: 20060323
  10. PYRIDOXINE HCL [Concomitant]
     Route: 048
     Dates: start: 20060224
  11. RANITIDINE [Concomitant]
     Route: 048
     Dates: start: 20060221
  12. ACETAMINOPHEN [Concomitant]
     Dosage: 350 TO 650 MG Q 6 HR PRN
     Route: 048
  13. MILK OF MAGNESIA TAB [Concomitant]
     Dosage: 15 TO 30 ML
     Route: 048
     Dates: start: 20060221
  14. DIOVOL [Concomitant]
     Dosage: 15 TO 30 ML
     Route: 048
     Dates: start: 20060224
  15. GENTAMYCIN OPHTHALMIC [Concomitant]
     Dosage: TO OD
     Route: 049
     Dates: start: 20060221
  16. LORAZEPAM [Concomitant]
     Route: 060
     Dates: start: 20060303
  17. DIPHENHYDRAMINE [Concomitant]
     Indication: PRURITUS
     Route: 048
     Dates: start: 20060301
  18. TELMISARTAN [Concomitant]
     Route: 048
     Dates: start: 20060307, end: 20060309

REACTIONS (5)
  - BLOOD CREATINE PHOSPHOKINASE INCREASED [None]
  - ERYTHEMA [None]
  - FACE OEDEMA [None]
  - PRURITUS [None]
  - URTICARIA [None]
